FAERS Safety Report 16016904 (Version 3)
Quarter: 2019Q2

REPORT INFORMATION
  Report Type: Spontaneous
  Country: US (occurrence: US)
  Receive Date: 20190228
  Receipt Date: 20190612
  Transmission Date: 20190711
  Serious: No
  Sender: FDA-Public Use
  Company Number: US-PFIZER INC-2019080086

PATIENT
  Age: 82 Year
  Sex: Female

DRUGS (2)
  1. LATANOPROST. [Suspect]
     Active Substance: LATANOPROST
     Indication: GLAUCOMA
     Dosage: UNK, 1X/DAY (2.5 MG IN THE BOTTLE, ONCE A DAY AT BED TIME)
  2. LATANOPROST. [Suspect]
     Active Substance: LATANOPROST
     Dosage: 2 GTT, 1X/DAY (AT BEDTIME)

REACTIONS (3)
  - Product use complaint [Unknown]
  - Product dose omission [Unknown]
  - Underweight [Unknown]

NARRATIVE: CASE EVENT DATE: 20190218
